FAERS Safety Report 9485090 (Version 1)
Quarter: 2013Q3

REPORT INFORMATION
  Report Type: Spontaneous
  Country: US (occurrence: US)
  Receive Date: 20130828
  Receipt Date: 20130828
  Transmission Date: 20140515
  Serious: No
  Sender: FDA-Public Use
  Company Number: US-ABBOTT-13P-163-1112073-00

PATIENT
  Age: 64 Year
  Sex: Male
  Weight: 79 kg

DRUGS (2)
  1. ANDROGEL [Suspect]
     Indication: BLOOD TESTOSTERONE DECREASED
     Dosage: TWO PUMPS DAILY, NEVER TITRATED UP.10 BOTTLES USED
     Route: 061
     Dates: start: 201209, end: 20130617
  2. SEROQUEL [Concomitant]
     Indication: BIPOLAR DISORDER
     Dosage: TAKEN IN EVENING
     Route: 048

REACTIONS (3)
  - Drug dose omission [Not Recovered/Not Resolved]
  - Drug ineffective [Not Recovered/Not Resolved]
  - Blood testosterone abnormal [Not Recovered/Not Resolved]
